FAERS Safety Report 13907470 (Version 1)
Quarter: 2017Q3

REPORT INFORMATION
  Report Type: Spontaneous
  Country: US (occurrence: US)
  Receive Date: 20170825
  Receipt Date: 20170825
  Transmission Date: 20171127
  Serious: No
  Sender: FDA-Public Use
  Company Number: US-ROCHE-1314353

PATIENT
  Sex: Female

DRUGS (1)
  1. NUTROPIN AQ [Suspect]
     Active Substance: SOMATROPIN
     Indication: GROWTH HORMONE DEFICIENCY
     Dosage: 0.5 MG ON ONE DAY, 0.6MG ON THE NEXT DAY CONTINUOUSL
     Route: 058
     Dates: start: 20130822

REACTIONS (4)
  - Anaemia [Unknown]
  - Headache [Unknown]
  - Arthralgia [Unknown]
  - Blood count abnormal [Unknown]
